FAERS Safety Report 26134462 (Version 1)
Quarter: 2025Q4

REPORT INFORMATION
  Report Type: Spontaneous
  Country: EU (occurrence: EU)
  Receive Date: 20251209
  Receipt Date: 20251209
  Transmission Date: 20260118
  Serious: Yes (Death, Hospitalization)
  Sender: TEVA
  Company Number: EU-TEVA-VS-3401163

PATIENT
  Age: 64 Year
  Sex: Female

DRUGS (1)
  1. BENDAMUSTINE [Suspect]
     Active Substance: BENDAMUSTINE
     Indication: Waldenstrom^s macroglobulinaemia
     Route: 065

REACTIONS (3)
  - Sepsis [Fatal]
  - Renal failure [Unknown]
  - Peritonitis [Unknown]
